FAERS Safety Report 9467445 (Version 1)
Quarter: 2013Q3

REPORT INFORMATION
  Report Type: Report from Study
  Country: US (occurrence: US)
  Receive Date: 20130821
  Receipt Date: 20130821
  Transmission Date: 20140515
  Serious: Yes (Hospitalization)
  Sender: FDA-Public Use
  Company Number: PHEH2013US017591

PATIENT
  Age: 19 Year
  Sex: Male

DRUGS (1)
  1. TOBI [Suspect]
     Dosage: 300 MG, BID

REACTIONS (5)
  - Pneumonia [Unknown]
  - Viral infection [Unknown]
  - Pulmonary function test decreased [Unknown]
  - Productive cough [Unknown]
  - Cough [Unknown]
